FAERS Safety Report 9246323 (Version 2)
Quarter: 2013Q2

REPORT INFORMATION
  Report Type: Spontaneous
  Country: US (occurrence: US)
  Receive Date: 20130422
  Receipt Date: 20130513
  Transmission Date: 20140414
  Serious: Yes (Death, Hospitalization)
  Sender: FDA-Public Use
  Company Number: US-INCYTE CORPORATION-2013IN000544

PATIENT
  Age: 72 Year
  Sex: Female
  Weight: 111 kg

DRUGS (1)
  1. JAKAFI [Suspect]
     Indication: MYELOFIBROSIS
     Dosage: 5 MG, BID
     Route: 048
     Dates: start: 20130105, end: 201302

REACTIONS (2)
  - Multi-organ failure [Fatal]
  - Haemorrhage [Recovered/Resolved]
